FAERS Safety Report 5526709-4 (Version None)
Quarter: 2007Q4

REPORT INFORMATION
  Report Type: 
  Country: None (occurrence: None)
  Receive Date: 20071123
  Receipt Date: 20070209
  Transmission Date: 20080405
  Serious: Yes (Death, Hospitalization)
  Sender: FDA-Public Use
  Company Number: 2007MP000068

PATIENT
  Sex: Female

DRUGS (1)
  1. GLIADEL [Suspect]
     Dosage: ICER
     Dates: start: 20060901, end: 20060901

REACTIONS (2)
  - NEOPLASM PROGRESSION [None]
  - POSTOPERATIVE WOUND INFECTION [None]
